FAERS Safety Report 4903874-0 (Version None)
Quarter: 2006Q1

REPORT INFORMATION
  Report Type: 
  Country: None (occurrence: None)
  Receive Date: 20060208
  Receipt Date: 20050718
  Transmission Date: 20060701
  Serious: No
  Sender: FDA-Public Use
  Company Number: US-GLAXOSMITHKLINE-A0566710A

PATIENT
  Age: 59 Year
  Sex: Female

DRUGS (4)
  1. PAXIL [Suspect]
     Indication: DEPRESSION
     Dosage: 40MG TWICE PER DAY
     Route: 048
  2. INSULIN [Concomitant]
  3. ASTHMA MEDICATION [Concomitant]
  4. PAIN MEDICATION [Concomitant]

REACTIONS (1)
  - ADVERSE EVENT [None]
